FAERS Safety Report 20521292 (Version 15)
Quarter: 2022Q4

REPORT INFORMATION
  Report Type: Report from Study
  Country: CN (occurrence: None)
  Receive Date: 20220226
  Receipt Date: 20221124
  Transmission Date: 20230112
  Serious: Yes (Hospitalization)
  Sender: FDA-Public Use
  Company Number: CN-ROCHE-2895247

PATIENT
  Age: 60 Year
  Sex: Male
  Weight: 73 kg

DRUGS (47)
  1. ATEZOLIZUMAB [Suspect]
     Active Substance: ATEZOLIZUMAB
     Indication: Oesophageal squamous cell carcinoma metastatic
     Dosage: START DATE OF MOST RECENT DOSE OF STUDY DRUG PRIOR TO AE AND SAE 03/AUG/2021
     Route: 041
     Dates: start: 20210416
  2. TIRAGOLUMAB [Suspect]
     Active Substance: TIRAGOLUMAB
     Indication: Oesophageal squamous cell carcinoma metastatic
     Dosage: START DATE OF MOST RECENT DOSE OF STUDY DRUG PRIOR TO AE AND SAE 03/AUG/2021
     Route: 042
     Dates: start: 20210416
  3. PACLITAXEL [Suspect]
     Active Substance: PACLITAXEL
     Indication: Oesophageal squamous cell carcinoma metastatic
     Dosage: START DATE OF MOST RECENT DOSE 338 MG OF STUDY DRUG PRIOR TO AE:22-JUN-2021
     Route: 042
     Dates: start: 20210416
  4. CISPLATIN [Suspect]
     Active Substance: CISPLATIN
     Indication: Oesophageal squamous cell carcinoma metastatic
     Dosage: START DATE OF MOST RECENT DOSE 145 MG OF STUDY DRUG PRIOR TO AE: 22-JUN-2021
     Route: 042
     Dates: start: 20210416
  5. HYDROTALCITE [Concomitant]
     Active Substance: HYDROTALCITE
     Indication: Abdominal discomfort
     Dates: start: 20210520, end: 20210815
  6. OMEPRAZOLE\SODIUM BICARBONATE [Concomitant]
     Active Substance: OMEPRAZOLE\SODIUM BICARBONATE
     Indication: Abdominal discomfort
     Dates: start: 20210513, end: 20210815
  7. METOCLOPRAMIDE HYDROCHLORIDE [Concomitant]
     Active Substance: METOCLOPRAMIDE HYDROCHLORIDE
     Dates: start: 20210713, end: 20210713
  8. METOCLOPRAMIDE HYDROCHLORIDE [Concomitant]
     Active Substance: METOCLOPRAMIDE HYDROCHLORIDE
     Dates: start: 20210813, end: 20210813
  9. INSULIN GLARGINE [Concomitant]
     Active Substance: INSULIN GLARGINE
     Indication: Diabetes mellitus
     Dates: start: 2006
  10. METHYLCOBALAMIN [Concomitant]
     Active Substance: METHYLCOBALAMIN
     Dates: start: 20210714, end: 20210720
  11. METHYLCOBALAMIN [Concomitant]
     Active Substance: METHYLCOBALAMIN
     Dates: start: 20210803, end: 20210809
  12. PREDNISONE ACETATE [Concomitant]
     Active Substance: PREDNISONE ACETATE
     Indication: Hypersensitivity
     Route: 048
     Dates: start: 20210817, end: 20210826
  13. PREDNISONE ACETATE [Concomitant]
     Active Substance: PREDNISONE ACETATE
     Route: 048
     Dates: start: 20210827, end: 20210903
  14. PREDNISONE ACETATE [Concomitant]
     Active Substance: PREDNISONE ACETATE
     Route: 048
     Dates: start: 20210904, end: 20210909
  15. PREDNISONE ACETATE [Concomitant]
     Active Substance: PREDNISONE ACETATE
     Route: 048
     Dates: start: 20210910, end: 20210915
  16. PREDNISONE ACETATE [Concomitant]
     Active Substance: PREDNISONE ACETATE
     Route: 048
     Dates: start: 20210916, end: 20211006
  17. PREDNISONE ACETATE [Concomitant]
     Active Substance: PREDNISONE ACETATE
     Route: 048
     Dates: start: 20210814, end: 20210816
  18. PREDNISOLONE SODIUM SUCCINATE [Concomitant]
     Active Substance: PREDNISOLONE SODIUM SUCCINATE
     Indication: Hypersensitivity
     Route: 042
     Dates: start: 20210814, end: 20210816
  19. ALUMINIUM HYDROXIDE-MAGNESIUM CARBONATE [Concomitant]
     Route: 048
     Dates: start: 20210526, end: 20210815
  20. SODIUM CHLORIDE [Concomitant]
     Active Substance: SODIUM CHLORIDE
     Indication: Hyponatraemia
     Dates: start: 20210815, end: 20210816
  21. SODIUM CHLORIDE [Concomitant]
     Active Substance: SODIUM CHLORIDE
     Dates: start: 20210813, end: 20210819
  22. SODIUM CHLORIDE [Concomitant]
     Active Substance: SODIUM CHLORIDE
     Dates: start: 20210813, end: 20210813
  23. DEXTROSE [Concomitant]
     Active Substance: DEXTROSE
     Dates: start: 20210813, end: 20210819
  24. DEXTROSE [Concomitant]
     Active Substance: DEXTROSE
     Dates: start: 20210814, end: 20210814
  25. DEXTROSE [Concomitant]
     Active Substance: DEXTROSE
     Dates: start: 20210818, end: 20210818
  26. DEXTROSE [Concomitant]
     Active Substance: DEXTROSE
     Dates: start: 20210813, end: 20210816
  27. DEXTROSE [Concomitant]
     Active Substance: DEXTROSE
     Dates: start: 20210815, end: 20210816
  28. SODIUM CHLORIDE [Concomitant]
     Active Substance: SODIUM CHLORIDE
     Indication: Hyponatraemia
     Dates: start: 20210813, end: 20210813
  29. SODIUM CHLORIDE [Concomitant]
     Active Substance: SODIUM CHLORIDE
     Route: 042
     Dates: start: 20210815, end: 20210816
  30. SODIUM BICARBONATE [Concomitant]
     Active Substance: SODIUM BICARBONATE
     Indication: Blood uric acid
     Dates: start: 20210814, end: 20210814
  31. SODIUM BICARBONATE [Concomitant]
     Active Substance: SODIUM BICARBONATE
     Route: 048
     Dates: start: 20210827, end: 20210903
  32. SODIUM BICARBONATE [Concomitant]
     Active Substance: SODIUM BICARBONATE
     Dates: start: 20210830, end: 20210903
  33. ESOMEPRAZOLE SODIUM [Concomitant]
     Active Substance: ESOMEPRAZOLE SODIUM
     Dates: start: 20210814, end: 20210819
  34. ESOMEPRAZOLE SODIUM [Concomitant]
     Active Substance: ESOMEPRAZOLE SODIUM
     Dates: start: 20210827, end: 20210903
  35. CALCIUM CARBONATE\CHOLECALCIFEROL [Concomitant]
     Active Substance: CALCIUM CARBONATE\CHOLECALCIFEROL
     Dates: start: 20210817, end: 20210817
  36. CALCITRIOL [Concomitant]
     Active Substance: CALCITRIOL
     Indication: Bone metabolism disorder
     Dates: start: 20210817, end: 20210818
  37. CALCITRIOL [Concomitant]
     Active Substance: CALCITRIOL
     Dates: start: 20210827, end: 20211215
  38. FUROSEMIDE [Concomitant]
     Active Substance: FUROSEMIDE
     Indication: Polyuria
     Dates: start: 20210815, end: 20210815
  39. FUROSEMIDE [Concomitant]
     Active Substance: FUROSEMIDE
     Dates: start: 20210810, end: 20210819
  40. LINAGLIPTIN [Concomitant]
     Active Substance: LINAGLIPTIN
     Dates: start: 20210827, end: 20210903
  41. LINAGLIPTIN [Concomitant]
     Active Substance: LINAGLIPTIN
     Dates: start: 20210902, end: 20210903
  42. INSULIN ASPART [Concomitant]
     Active Substance: INSULIN ASPART
     Dates: start: 20210827, end: 20210903
  43. LACTULOSE [Concomitant]
     Active Substance: LACTULOSE
     Dates: start: 20210418
  44. CALCIUM POLYSTYRENE SULFONATE [Concomitant]
     Active Substance: CALCIUM POLYSTYRENE SULFONATE
     Indication: Hyperkalaemia
     Dates: start: 20210810, end: 20210818
  45. OMEPRAZOLE [Concomitant]
     Active Substance: OMEPRAZOLE
     Indication: Gastrooesophageal reflux disease
     Dates: start: 20210402
  46. ACETAMINOPHEN [Concomitant]
     Active Substance: ACETAMINOPHEN
     Indication: Influenza like illness
     Dates: start: 20210804, end: 20210806
  47. DEXTROSE\SODIUM CHLORIDE [Concomitant]
     Active Substance: DEXTROSE\SODIUM CHLORIDE
     Dates: start: 20210814, end: 20210814

REACTIONS (1)
  - Immune-mediated nephritis [Not Recovered/Not Resolved]

NARRATIVE: CASE EVENT DATE: 20210810
